FAERS Safety Report 5062976-1 (Version None)
Quarter: 2006Q3

REPORT INFORMATION
  Report Type: 
  Country: None (occurrence: None)
  Receive Date: 20060724
  Receipt Date: 20060712
  Transmission Date: 20061208
  Serious: Yes (Death)
  Sender: FDA-Public Use
  Company Number: 06H-163-0309062-00

PATIENT
  Sex: 0

DRUGS (6)
  1. ETOPOSIDE [Suspect]
     Indication: SMALL CELL LUNG CANCER LIMITED STAGE
     Dosage: 80 MG/M2, DAY 1, INTRAVENOUS
     Route: 042
  2. DOCETAXEL (DOCETAXEL) [Suspect]
     Indication: SMALL CELL LUNG CANCER LIMITED STAGE
     Dosage: 50 MG/M2, DAY 1, INTRAVENOUS
     Route: 042
  3. CARBOPLATIN [Suspect]
     Indication: SMALL CELL LUNG CANCER LIMITED STAGE
     Dosage: DAY 1, INTRAVENOUS
     Route: 042
  4. ETOPOSIDE [Suspect]
     Indication: SMALL CELL LUNG CANCER LIMITED STAGE
     Dosage: 160 MG/M2, DAY 2 AND 3, ORAL
     Route: 048
  5. DEXAMETHASONE [Concomitant]
  6. GRANULOCYTE COLONY STIMULATING FACTOR (GRANULOCYTE COLONY STIMULATING [Concomitant]

REACTIONS (2)
  - DRUG TOXICITY [None]
  - NEUTROPENIC SEPSIS [None]
